FAERS Safety Report 13643001 (Version 1)
Quarter: 2017Q2

REPORT INFORMATION
  Report Type: Report from Study
  Country: DE (occurrence: DE)
  Receive Date: 20170612
  Receipt Date: 20170612
  Transmission Date: 20170830
  Serious: Yes (Hospitalization, Other)
  Sender: FDA-Public Use
  Company Number: DE-GILEAD-2017-0276537

PATIENT
  Age: 49 Year
  Sex: Male
  Weight: 115 kg

DRUGS (12)
  1. IBUPROFEN. [Concomitant]
     Active Substance: IBUPROFEN
     Dosage: UNK UNK, PRN
  2. NOCTAMID [Concomitant]
     Active Substance: LORMETAZEPAM
     Dosage: 2 MG, PRN
  3. LOPEDIUM [Concomitant]
     Active Substance: LOPERAMIDE
     Dosage: UNK, PRN
  4. LEDIPASVIR/SOFOSBUVIR [Suspect]
     Active Substance: LEDIPASVIR\SOFOSBUVIR
     Indication: CHRONIC HEPATITIS C
     Dosage: 90 MG, QD
     Route: 048
     Dates: start: 20150720, end: 20151010
  5. AMLODIPIN                          /00972401/ [Concomitant]
     Active Substance: AMLODIPINE BESYLATE
     Dosage: UNK, BID
  6. PROTAPHANE [Concomitant]
     Active Substance: INSULIN HUMAN
     Dosage: UNK UNK, BID
  7. GODAMED [Concomitant]
     Active Substance: ASPIRIN
     Dosage: 100 MG, QD
  8. METOPROLOL. [Concomitant]
     Active Substance: METOPROLOL
     Dosage: 100 MG, BID
  9. OMEPRAZOL                          /00661201/ [Concomitant]
     Active Substance: OMEPRAZOLE
     Dosage: 20 MG, PRN
  10. PALLADON [Concomitant]
     Active Substance: HYDROMORPHONE
     Dosage: 4 MG, PRN
  11. RAMIPRIL. [Concomitant]
     Active Substance: RAMIPRIL
     Dosage: 5 MG, QD
  12. ACTRAPID [Concomitant]
     Active Substance: INSULIN HUMAN
     Dosage: UNK UNK, TID

REACTIONS (1)
  - Cholangiocarcinoma [Not Recovered/Not Resolved]

NARRATIVE: CASE EVENT DATE: 20170410
